FAERS Safety Report 8043519-7 (Version None)
Quarter: 2012Q1

REPORT INFORMATION
  Report Type: 
  Country: None (occurrence: None)
  Receive Date: 20120112
  Receipt Date: 20120109
  Transmission Date: 20120608
  Serious: Yes (Hospitalization, Other)
  Sender: FDA-Public Use
  Company Number: US-AMGEN-USASP2010002703

PATIENT
  Age: 67 Year
  Sex: Female
  Weight: 73.016 kg

DRUGS (6)
  1. GABAPENTIN [Concomitant]
  2. CYMBALTA [Concomitant]
  3. INFLUENZA VACCINE [Concomitant]
     Dates: start: 20101010, end: 20101010
  4. DIOVAN [Concomitant]
     Indication: HYPERTENSION
  5. PROLIA [Suspect]
     Indication: OSTEOPOROSIS POSTMENOPAUSAL
     Dosage: 60 MG, Q6MO
     Route: 058
     Dates: start: 20100922
  6. HUMIRA [Concomitant]
     Indication: RHEUMATOID ARTHRITIS
     Dosage: UNK
     Dates: start: 20100901

REACTIONS (8)
  - MYALGIA [None]
  - MALAISE [None]
  - MENINGITIS [None]
  - NECK PAIN [None]
  - HEADACHE [None]
  - OEDEMA PERIPHERAL [None]
  - PAIN [None]
  - PAIN IN EXTREMITY [None]
